FAERS Safety Report 8457477-4 (Version None)
Quarter: 2012Q2

REPORT INFORMATION
  Report Type: 
  Country: None (occurrence: None)
  Receive Date: 20120622
  Receipt Date: 20120608
  Transmission Date: 20120825
  Serious: Yes (Hospitalization)
  Sender: FDA-Public Use
  Company Number: TH-BRISTOL-MYERS SQUIBB COMPANY-16528879

PATIENT
  Age: 51 Year
  Sex: Male

DRUGS (3)
  1. ARIPIPRAZOLE [Suspect]
     Indication: SCHIZOPHRENIA
     Dosage: IM DEPOT ON 26DEC11, 23JAN12, 20FEB12
     Route: 030
     Dates: start: 20111031, end: 20120319
  2. TRIHEXYPHENIDYL HCL [Concomitant]
     Indication: PROPHYLAXIS
     Dates: start: 20110606, end: 20120409
  3. DIAZEPAM [Concomitant]
     Indication: PROPHYLAXIS
     Route: 048
     Dates: start: 20120109, end: 20120409

REACTIONS (1)
  - SCHIZOPHRENIA [None]
